FAERS Safety Report 14211410 (Version 1)
Quarter: 2017Q4

REPORT INFORMATION
  Report Type: Report from Study
  Country: DK (occurrence: DK)
  Receive Date: 20171121
  Receipt Date: 20171121
  Transmission Date: 20180321
  Serious: Yes (Other)
  Sender: FDA-Public Use
  Company Number: DK-ELI_LILLY_AND_COMPANY-DK201711008110

PATIENT
  Sex: Male

DRUGS (4)
  1. JAVLOR [Concomitant]
     Indication: TRANSITIONAL CELL CARCINOMA
     Dosage: 280 MG/M2, CYCLICAL
     Route: 042
  2. PEMETREXED. [Suspect]
     Active Substance: PEMETREXED
     Indication: TRANSITIONAL CELL CARCINOMA
     Dosage: 400 MG/M2, CYCLICAL
     Route: 042
  3. VITAMIN B12 [Concomitant]
     Active Substance: CYANOCOBALAMIN
     Indication: VITAMIN SUPPLEMENTATION
     Dosage: UNK, UNKNOWN
     Route: 065
  4. FOLIC ACID. [Concomitant]
     Active Substance: FOLIC ACID
     Indication: VITAMIN SUPPLEMENTATION
     Dosage: UNK, UNKNOWN
     Route: 065

REACTIONS (1)
  - Hepatobiliary disease [Unknown]
